FAERS Safety Report 5444289-9 (Version None)
Quarter: 2007Q3

REPORT INFORMATION
  Report Type: 
  Country: None (occurrence: None)
  Receive Date: 20070904
  Receipt Date: 20070904
  Transmission Date: 20080115
  Serious: Yes (Hospitalization)
  Sender: FDA-Public Use
  Company Number: None

PATIENT
  Age: 62 Year
  Sex: Male
  Weight: 82.5547 kg

DRUGS (9)
  1. NIASPAN [Suspect]
     Indication: CORONARY ARTERY DISEASE
     Dosage: 1500MG NIGHTLY PO
     Route: 048
     Dates: start: 20061217, end: 20061221
  2. BENAZEPRIL HYDROCHLORIDE [Concomitant]
  3. LEVOTHYROXINE SODIUM [Concomitant]
  4. METOPROLOL SUCCINATE [Concomitant]
  5. OMEGA 3 FISH OIL [Concomitant]
  6. ASPIRIN [Concomitant]
  7. TERAZOSIN HCL [Concomitant]
  8. ZOCOR [Concomitant]
  9. NIACIN [Concomitant]

REACTIONS (3)
  - CHOLELITHIASIS [None]
  - PANCREATITIS [None]
  - PSEUDOCYST [None]
